FAERS Safety Report 15760002 (Version 1)
Quarter: 2018Q4

REPORT INFORMATION
  Report Type: Spontaneous
  Country: NL (occurrence: NL)
  Receive Date: 20181226
  Receipt Date: 20181226
  Transmission Date: 20190205
  Serious: Yes (Congenital Anomaly)
  Sender: FDA-Public Use
  Company Number: PHHY2018NL194067

PATIENT
  Sex: Female
  Weight: 3 kg

DRUGS (2)
  1. FOLIUMZUUR [Concomitant]
     Active Substance: FOLIC ACID
     Indication: FOETAL EXPOSURE DURING PREGNANCY
     Dosage: MATERNAL DOSE: UNK
     Route: 064
  2. ATORVASTATIN [Suspect]
     Active Substance: ATORVASTATIN
     Indication: FOETAL EXPOSURE DURING PREGNANCY
     Dosage: MATERNAL DOSE: 40 MG, QD
     Route: 064

REACTIONS (1)
  - Congenital bowing of long bones [Not Recovered/Not Resolved]
